FAERS Safety Report 4714862-1 (Version None)
Quarter: 2005Q3

REPORT INFORMATION
  Report Type: 
  Country: None (occurrence: None)
  Receive Date: 20050712
  Receipt Date: 20050701
  Transmission Date: 20060218
  Serious: Yes (Death)
  Sender: FDA-Public Use
  Company Number: 2005094838

PATIENT

DRUGS (1)
  1. SULPERAZONE (SULBACTAM, CEFOPERAZONE) [Suspect]
     Indication: CHOLECYSTITIS
     Dosage: INTRAVENOUS
     Route: 042

REACTIONS (1)
  - DEATH [None]
